FAERS Safety Report 11315535 (Version 4)
Quarter: 2016Q1

REPORT INFORMATION
  Report Type: Report from Study
  Country: US (occurrence: US)
  Receive Date: 20150728
  Receipt Date: 20160316
  Transmission Date: 20160525
  Serious: Yes (Hospitalization, Other)
  Sender: FDA-Public Use
  Company Number: US-AEGERION PHARMACEUTICALS-AEGR001891

PATIENT
  Age: 71 Year
  Sex: Male
  Weight: 78.91 kg

DRUGS (10)
  1. JUXTAPID [Suspect]
     Active Substance: LOMITAPIDE MESYLATE
     Dosage: 10 MG, QD
     Route: 048
     Dates: start: 20140626, end: 20150619
  2. JUXTAPID [Suspect]
     Active Substance: LOMITAPIDE MESYLATE
     Indication: TYPE IIA HYPERLIPIDAEMIA
     Dosage: 5 MG, QD
     Route: 048
     Dates: start: 20140422, end: 20140625
  3. VALSARTAN. [Concomitant]
     Active Substance: VALSARTAN
     Indication: HYPERTENSION
     Dosage: 80 MG, QD
     Route: 048
     Dates: start: 2012
  4. VITAMIN E [Concomitant]
     Active Substance: .ALPHA.-TOCOPHEROL
     Indication: PRODUCT USED FOR UNKNOWN INDICATION
  5. FISH OIL OMEGA 3 [Concomitant]
     Indication: BLOOD TRIGLYCERIDES
     Dosage: 1000 MG, BID
     Route: 048
     Dates: start: 20120510
  6. NIASPAN [Concomitant]
     Active Substance: NIACIN
     Indication: CORONARY ARTERY DISEASE
     Dosage: 500 MG, BID
     Route: 048
     Dates: start: 20130807
  7. ZYRTEC [Concomitant]
     Active Substance: CETIRIZINE HYDROCHLORIDE
     Indication: SEASONAL ALLERGY
     Dosage: 10 MG, QD
     Route: 048
     Dates: start: 2010
  8. CO ENZYME Q10 [Concomitant]
     Indication: MYALGIA
     Dosage: 200 MG, BID
     Route: 048
     Dates: start: 2008
  9. JUXTAPID [Suspect]
     Active Substance: LOMITAPIDE MESYLATE
     Dosage: 10 MG, UNK
     Dates: start: 20150717
  10. ASPIRIN. [Concomitant]
     Active Substance: ASPIRIN
     Indication: CORONARY ARTERY DISEASE
     Dosage: 162 MG, QD
     Route: 048
     Dates: start: 1990

REACTIONS (11)
  - Acute kidney injury [Recovering/Resolving]
  - Pyrexia [Recovered/Resolved]
  - Hepatic enzyme increased [Recovered/Resolved]
  - Therapy cessation [Recovered/Resolved]
  - Pancytopenia [Unknown]
  - Asthenia [Unknown]
  - Sepsis [Unknown]
  - Hyponatraemia [Recovering/Resolving]
  - Urinary tract infection [Unknown]
  - Aspartate aminotransferase increased [Recovered/Resolved]
  - Human ehrlichiosis [Recovered/Resolved]

NARRATIVE: CASE EVENT DATE: 20150617
